FAERS Safety Report 22162491 (Version 1)
Quarter: 2023Q1

REPORT INFORMATION
  Report Type: Spontaneous
  Country: ES (occurrence: ES)
  Receive Date: 20230331
  Receipt Date: 20230331
  Transmission Date: 20230418
  Serious: Yes (Death)
  Sender: FDA-Public Use
  Company Number: ES-SHIONOGI, INC-2023000737

PATIENT
  Age: 44 Year

DRUGS (21)
  1. FETROJA [Suspect]
     Active Substance: CEFIDEROCOL SULFATE TOSYLATE
     Indication: Pneumonia
     Dosage: 2 G, 8 HOUR
     Route: 042
  2. FETROJA [Suspect]
     Active Substance: CEFIDEROCOL SULFATE TOSYLATE
     Indication: Sepsis
     Dosage: 1 G. 8 HOUR
     Route: 042
  3. FETROJA [Suspect]
     Active Substance: CEFIDEROCOL SULFATE TOSYLATE
     Indication: Acinetobacter infection
  4. FETROJA [Suspect]
     Active Substance: CEFIDEROCOL SULFATE TOSYLATE
     Indication: Pathogen resistance
  5. FETROJA [Suspect]
     Active Substance: CEFIDEROCOL SULFATE TOSYLATE
     Indication: Klebsiella infection
  6. FETROJA [Suspect]
     Active Substance: CEFIDEROCOL SULFATE TOSYLATE
     Indication: Candida infection
  7. FETROJA [Suspect]
     Active Substance: CEFIDEROCOL SULFATE TOSYLATE
     Indication: Drug resistance
  8. TOBRAMYCIN [Concomitant]
     Active Substance: TOBRAMYCIN
     Indication: Pneumonia
  9. TOBRAMYCIN [Concomitant]
     Active Substance: TOBRAMYCIN
     Indication: Sepsis
  10. TOBRAMYCIN [Concomitant]
     Active Substance: TOBRAMYCIN
     Indication: Candida infection
  11. TOBRAMYCIN [Concomitant]
     Active Substance: TOBRAMYCIN
     Indication: Drug resistance
  12. TOBRAMYCIN [Concomitant]
     Active Substance: TOBRAMYCIN
     Indication: Acinetobacter infection
  13. TOBRAMYCIN [Concomitant]
     Active Substance: TOBRAMYCIN
     Indication: Pathogen resistance
  14. TOBRAMYCIN [Concomitant]
     Active Substance: TOBRAMYCIN
     Indication: Klebsiella infection
  15. COLISTIN [Concomitant]
     Active Substance: COLISTIN
     Indication: Pneumonia
  16. COLISTIN [Concomitant]
     Active Substance: COLISTIN
     Indication: Sepsis
  17. COLISTIN [Concomitant]
     Active Substance: COLISTIN
     Indication: Drug resistance
  18. COLISTIN [Concomitant]
     Active Substance: COLISTIN
     Indication: Acinetobacter infection
  19. COLISTIN [Concomitant]
     Active Substance: COLISTIN
     Indication: Pathogen resistance
  20. COLISTIN [Concomitant]
     Active Substance: COLISTIN
     Indication: Klebsiella infection
  21. COLISTIN [Concomitant]
     Active Substance: COLISTIN
     Indication: Candida infection

REACTIONS (1)
  - Death [Fatal]
